FAERS Safety Report 6157981-8 (Version None)
Quarter: 2009Q2

REPORT INFORMATION
  Report Type: 
  Country: None (occurrence: None)
  Receive Date: 20090417
  Receipt Date: 20090406
  Transmission Date: 20091009
  Serious: Yes (Life-Threatening, Other)
  Sender: FDA-Public Use
  Company Number: JP-PFIZER INC-2009167041

PATIENT

DRUGS (4)
  1. ZYVOX [Suspect]
     Indication: WOUND INFECTION STAPHYLOCOCCAL
     Dosage: 600 MG, 2X/DAY
     Route: 042
     Dates: start: 20090129, end: 20090202
  2. MODACIN [Suspect]
     Indication: WOUND INFECTION STAPHYLOCOCCAL
     Dosage: UNK
     Route: 042
     Dates: start: 20090129, end: 20090202
  3. MEROPEN [Suspect]
     Indication: WOUND INFECTION STAPHYLOCOCCAL
     Dosage: 0.5 G, 2X/DAY
     Route: 042
     Dates: start: 20090127, end: 20090129
  4. VANCOMYCIN [Concomitant]

REACTIONS (1)
  - ACUTE RESPIRATORY DISTRESS SYNDROME [None]
